FAERS Safety Report 7911667-5 (Version None)
Quarter: 2011Q4

REPORT INFORMATION
  Report Type: 
  Country: None (occurrence: None)
  Receive Date: 20111114
  Receipt Date: 20111102
  Transmission Date: 20120403
  Serious: No
  Sender: FDA-Public Use
  Company Number: JP-JNJFOC-20111102495

PATIENT
  Age: 72 Year
  Sex: Male

DRUGS (3)
  1. FENTANYL-100 [Suspect]
     Indication: PAIN
     Route: 062
  2. FENTANYL-100 [Suspect]
     Dosage: HALF OF ONE 12.5 UG/HR PATCH
     Route: 062
  3. CODEINE PHOSPHATE [Concomitant]
     Indication: PAIN
     Route: 065

REACTIONS (4)
  - DRUG PRESCRIBING ERROR [None]
  - DIZZINESS [None]
  - NAUSEA [None]
  - WRONG TECHNIQUE IN DRUG USAGE PROCESS [None]
